FAERS Safety Report 7037081-5 (Version None)
Quarter: 2010Q4

REPORT INFORMATION
  Report Type: 
  Country: None (occurrence: None)
  Receive Date: 20101011
  Receipt Date: 20100928
  Transmission Date: 20110411
  Serious: Yes (Other)
  Sender: FDA-Public Use
  Company Number: PHHY2010JP51545

PATIENT
  Sex: Male

DRUGS (8)
  1. AFINITOR [Suspect]
     Indication: METASTATIC RENAL CELL CARCINOMA
     Dosage: 10 MG DAILY
     Route: 048
     Dates: start: 20100626, end: 20100710
  2. AFINITOR [Suspect]
     Dosage: 10 MG DAILY
     Route: 048
     Dates: start: 20100717
  3. SORAFENIB TOSILATE [Concomitant]
     Dosage: 800 MG
     Route: 048
     Dates: start: 20091103
  4. FLIVAS [Concomitant]
  5. OLMETEC [Concomitant]
  6. NIFEDIPINE [Concomitant]
     Indication: HYPERTENSION
     Dosage: 40 MG
     Route: 048
     Dates: start: 20091204
  7. RIBALL [Concomitant]
     Dosage: 40 MG
     Route: 048
     Dates: start: 20091204
  8. FLUVASTATIN [Concomitant]
     Indication: HYPERLIPIDAEMIA
     Dosage: 30 MG
     Route: 048
     Dates: start: 20091204

REACTIONS (1)
  - HEPATIC FUNCTION ABNORMAL [None]
